FAERS Safety Report 11119849 (Version 3)
Quarter: 2016Q3

REPORT INFORMATION
  Report Type: Spontaneous
  Country: BR (occurrence: BR)
  Receive Date: 20150518
  Receipt Date: 20160912
  Transmission Date: 20161109
  Serious: Yes (Hospitalization)
  Sender: FDA-Public Use
  Company Number: BR-PFIZER INC-2015163513

PATIENT
  Age: 69 Year
  Sex: Male
  Weight: 98 kg

DRUGS (3)
  1. LISTRIL [Concomitant]
     Active Substance: LISINOPRIL
     Indication: HYPERTENSION
     Dosage: 1 TABLET, DAILY
     Dates: start: 2014, end: 201411
  2. CITALOR [Suspect]
     Active Substance: ATORVASTATIN
     Indication: HYPERTENSION
  3. CITALOR [Suspect]
     Active Substance: ATORVASTATIN
     Indication: BLOOD CHOLESTEROL ABNORMAL
     Dosage: 1 TABLET, 1X/DAY (AT NIGHT)
     Route: 048
     Dates: start: 2014, end: 201411

REACTIONS (2)
  - Ischaemic stroke [Recovered/Resolved with Sequelae]
  - Product use issue [Unknown]

NARRATIVE: CASE EVENT DATE: 20150503
